FAERS Safety Report 19900064 (Version 2)
Quarter: 2021Q4

REPORT INFORMATION
  Report Type: Spontaneous
  Country: US (occurrence: US)
  Receive Date: 20210930
  Receipt Date: 20211013
  Transmission Date: 20220303
  Serious: No
  Sender: FDA-Public Use
  Company Number: US-BLUEPRINT MEDICINES CORPORATION-SP-US-2021-001584

PATIENT
  Age: 57 Year
  Sex: Male

DRUGS (1)
  1. AYVAKIT [Suspect]
     Active Substance: AVAPRITINIB
     Indication: Gastrointestinal stromal tumour
     Route: 048
     Dates: start: 20191015

REACTIONS (10)
  - Pollakiuria [Unknown]
  - Blood creatine increased [Unknown]
  - Dysgeusia [Unknown]
  - Diarrhoea [Unknown]
  - Memory impairment [Unknown]
  - Vomiting [Unknown]
  - Taste disorder [Unknown]
  - Fatigue [Unknown]
  - Hernia [Unknown]
  - Product complaint [Unknown]
